FAERS Safety Report 19083612 (Version 1)
Quarter: 2021Q2

REPORT INFORMATION
  Report Type: Spontaneous
  Country: US (occurrence: US)
  Receive Date: 20210401
  Receipt Date: 20210401
  Transmission Date: 20210717
  Serious: No
  Sender: FDA-Public Use
  Company Number: US-BEH-2021129800

PATIENT
  Age: 54 Year
  Sex: Female

DRUGS (22)
  1. MELOXICAM. [Concomitant]
     Active Substance: MELOXICAM
  2. SOMA [Concomitant]
     Active Substance: CARISOPRODOL
     Dosage: 350 MILLIGRAM
  3. METFORMIN HCL [Concomitant]
     Active Substance: METFORMIN HYDROCHLORIDE
  4. VITAMIN D [ERGOCALCIFEROL] [Concomitant]
     Active Substance: ERGOCALCIFEROL
     Dosage: 50000 INTERNATIONAL UNIT
  5. HYDROCHLOROTHIAZID [Concomitant]
     Active Substance: HYDROCHLOROTHIAZIDE
     Dosage: 50 MILLIGRAM
  6. MIRAL [MAGNESIUM HYDROXIDE;POTASSIUM CHLORIDE] [Concomitant]
  7. NEXPLANON [Concomitant]
     Active Substance: ETONOGESTREL
     Dosage: 68 MILLIGRAM
  8. PRIVIGEN [Suspect]
     Active Substance: HUMAN IMMUNOGLOBULIN G
     Indication: MYASTHENIA GRAVIS
     Dosage: 20 GRAM FOR 3 DAYS, EVERY 10 WEEKS
     Route: 042
     Dates: start: 201708
  9. DICYCLOMINE [Concomitant]
     Active Substance: DICYCLOMINE HYDROCHLORIDE
  10. IMURAN [Concomitant]
     Active Substance: AZATHIOPRINE
     Dosage: 50 MILLIGRAM
  11. TRAMADOL HCL [Concomitant]
     Active Substance: TRAMADOL HYDROCHLORIDE
     Dosage: 50 MILLIGRAM
  12. NYSTATIN. [Concomitant]
     Active Substance: NYSTATIN
     Dosage: 500000 INTERNATIONAL UNIT
  13. HYDROCODONE [Concomitant]
     Active Substance: HYDROCODONE
     Dosage: 7.5?300 M
  14. PROAIR HFA [Concomitant]
     Active Substance: ALBUTEROL SULFATE
     Dosage: 108 (90 MC
  15. PREDNISOLONE. [Concomitant]
     Active Substance: PREDNISOLONE
  16. FAMOTIDINE. [Concomitant]
     Active Substance: FAMOTIDINE
  17. LINZESS [Concomitant]
     Active Substance: LINACLOTIDE
  18. CLONAZEPAM. [Concomitant]
     Active Substance: CLONAZEPAM
     Dosage: 2 MILLIGRAM
  19. IRON [Concomitant]
     Active Substance: IRON
     Dosage: 28 MILLIGRAM
  20. MULTIPLE VITAMINS [Concomitant]
     Active Substance: VITAMINS
  21. GABAPENTIN. [Concomitant]
     Active Substance: GABAPENTIN
  22. VITAMIN B12 [Concomitant]
     Active Substance: CYANOCOBALAMIN
     Dosage: 5000 MICROGRAM

REACTIONS (9)
  - Fatigue [Recovered/Resolved]
  - Back pain [Recovered/Resolved]
  - Bladder hypertrophy [Recovered/Resolved]
  - Headache [Recovered/Resolved]
  - Spinal pain [Recovered/Resolved]
  - Back pain [Recovered/Resolved]
  - Arthritis [Recovered/Resolved]
  - Influenza like illness [Recovered/Resolved]
  - Renal cyst [Recovered/Resolved]

NARRATIVE: CASE EVENT DATE: 20210223
